FAERS Safety Report 6460832-5 (Version None)
Quarter: 2009Q4

REPORT INFORMATION
  Report Type: 
  Country: None (occurrence: None)
  Receive Date: 20091117
  Receipt Date: 20091102
  Transmission Date: 20100525
  Serious: Yes (Other)
  Sender: FDA-Public Use
  Company Number: 20091012CINRY1193

PATIENT
  Sex: Female

DRUGS (2)
  1. CINRYZE [Suspect]
     Indication: HEREDITARY ANGIOEDEMA
     Dosage: (3 TO 4 DAYS A WEEK),INTRAVENOUS
     Route: 042
  2. CINRYZE [Suspect]
     Indication: PROPHYLAXIS
     Dosage: (3 TO 4 DAYS A WEEK),INTRAVENOUS
     Route: 042

REACTIONS (3)
  - ABORTION SPONTANEOUS [None]
  - DRUG EXPOSURE DURING PREGNANCY [None]
  - URINE HUMAN CHORIONIC GONADOTROPIN POSITIVE [None]
